FAERS Safety Report 25314122 (Version 1)
Quarter: 2025Q2

REPORT INFORMATION
  Report Type: Spontaneous
  Country: US (occurrence: US)
  Receive Date: 20250514
  Receipt Date: 20250514
  Transmission Date: 20250716
  Serious: Yes (Other)
  Sender: AMGEN
  Company Number: US-AMGEN-USASP2025090447

PATIENT
  Age: 76 Year
  Sex: Female

DRUGS (15)
  1. REPATHA [Suspect]
     Active Substance: EVOLOCUMAB
     Indication: Product used for unknown indication
     Dosage: UNK, Q2WK
     Route: 065
  2. AMLODIPINE [Concomitant]
     Active Substance: AMLODIPINE BESYLATE
  3. ASPIRIN [Concomitant]
     Active Substance: ASPIRIN
  4. Clavix [Concomitant]
  5. Clenbuterol-Pharma [Concomitant]
  6. Isosorbide Mononitrate and Glucose [Concomitant]
  7. MIRTAZAPINE [Concomitant]
     Active Substance: MIRTAZAPINE
  8. NEXLETOL [Concomitant]
     Active Substance: BEMPEDOIC ACID
  9. PROTONIX [Concomitant]
     Active Substance: PANTOPRAZOLE SODIUM
  10. HYDROXYZINE [Concomitant]
     Active Substance: HYDROXYZINE HYDROCHLORIDE
  11. RANOLAZINE [Concomitant]
     Active Substance: RANOLAZINE
  12. PAPAIN [Concomitant]
     Active Substance: PAPAIN
  13. TELMISARTAN [Concomitant]
     Active Substance: TELMISARTAN
  14. NITROGLYCERIN [Concomitant]
     Active Substance: NITROGLYCERIN
  15. ZOFRAN [Concomitant]
     Active Substance: ONDANSETRON HYDROCHLORIDE

REACTIONS (3)
  - Vascular graft stenosis [Unknown]
  - Drug dose omission by device [Unknown]
  - Device difficult to use [Unknown]

NARRATIVE: CASE EVENT DATE: 20250101
